FAERS Safety Report 17039559 (Version 1)
Quarter: 2019Q4

REPORT INFORMATION
  Report Type: Report from Study
  Country: NL (occurrence: NL)
  Receive Date: 20191115
  Receipt Date: 20191115
  Transmission Date: 20200122
  Serious: Yes (Hospitalization)
  Sender: FDA-Public Use
  Company Number: NL-EXELIXIS-XL18419025194

PATIENT
  Age: 56 Year
  Sex: Female
  Weight: 64.5 kg

DRUGS (1)
  1. XL184 [Suspect]
     Active Substance: CABOZANTINIB
     Indication: SALIVARY GLAND CANCER
     Dosage: 40 MG, QD
     Route: 048
     Dates: end: 20190716

REACTIONS (2)
  - Anal ulcer [Not Recovered/Not Resolved]
  - General physical health deterioration [Not Recovered/Not Resolved]

NARRATIVE: CASE EVENT DATE: 20190716
